FAERS Safety Report 9248233 (Version 2)
Quarter: 2013Q2

REPORT INFORMATION
  Report Type: Spontaneous
  Country: CA (occurrence: CA)
  Receive Date: 20130423
  Receipt Date: 20130520
  Transmission Date: 20140414
  Serious: Yes (Other)
  Sender: FDA-Public Use
  Company Number: CA-BAYER-2013-047568

PATIENT
  Age: 34 Year
  Sex: Female

DRUGS (1)
  1. MIRENA [Suspect]
     Dosage: 20 MCG/24HR, CONT
     Route: 015
     Dates: start: 20111124, end: 20130215

REACTIONS (6)
  - Pregnancy with contraceptive device [None]
  - Cervix dystocia [None]
  - Abdominal pain lower [None]
  - Menorrhagia [None]
  - Device issue [None]
  - Gestational diabetes [None]
